FAERS Safety Report 17972795 (Version 1)
Quarter: 2020Q3

REPORT INFORMATION
  Report Type: Spontaneous
  Country: US (occurrence: US)
  Receive Date: 20200701
  Receipt Date: 20200701
  Transmission Date: 20201103
  Serious: Yes (Other)
  Sender: FDA-Public Use
  Company Number: None

PATIENT
  Age: 27 Year
  Sex: Female
  Weight: 41.4 kg

DRUGS (3)
  1. IVERMECTIN. [Suspect]
     Active Substance: IVERMECTIN
     Indication: ACARODERMATITIS
     Dosage: ?          QUANTITY:3 TABLET(S);OTHER FREQUENCY:ONCE PER WEEK 2X;?
     Route: 048
     Dates: start: 20200625, end: 20200625
  2. VITAMIN C [Concomitant]
     Active Substance: ASCORBIC ACID
  3. ZINC. [Concomitant]
     Active Substance: ZINC

REACTIONS (6)
  - Urticaria [None]
  - Pruritus [None]
  - Erythema [None]
  - Exposure via breast milk [None]
  - Oropharyngeal pain [None]
  - Aphonia [None]

NARRATIVE: CASE EVENT DATE: 20200627
